FAERS Safety Report 10272515 (Version 1)
Quarter: 2014Q2

REPORT INFORMATION
  Report Type: Spontaneous
  Country: US (occurrence: None)
  Receive Date: 20140627
  Receipt Date: 20140627
  Transmission Date: 20141212
  Serious: Yes (Hospitalization)
  Sender: FDA-Public Use
  Company Number: None

PATIENT
  Age: 58 Year
  Sex: Female

DRUGS (2)
  1. CARBOPLATIN [Suspect]
  2. PACLITAXEL (TAXOL) [Suspect]

REACTIONS (10)
  - Diabetes mellitus [None]
  - Abdominal pain [None]
  - Abdominal mass [None]
  - Urinary tract infection [None]
  - Streptococcus test positive [None]
  - Anticoagulation drug level above therapeutic [None]
  - Localised intraabdominal fluid collection [None]
  - Hydrometra [None]
  - Abscess [None]
  - Purulent discharge [None]
